FAERS Safety Report 12730099 (Version 2)
Quarter: 2016Q3

REPORT INFORMATION
  Report Type: Report from Study
  Country: MX (occurrence: MX)
  Receive Date: 20160909
  Receipt Date: 20160927
  Transmission Date: 20161109
  Serious: Yes (Other)
  Sender: FDA-Public Use
  Company Number: MX-EMD SERONO-8105436

PATIENT
  Age: 34 Year
  Sex: Male
  Weight: 65 kg

DRUGS (2)
  1. REBIF [Suspect]
     Active Substance: INTERFERON BETA-1A
     Dosage: RESTARTED
     Route: 058
     Dates: start: 20160912
  2. REBIF [Suspect]
     Active Substance: INTERFERON BETA-1A
     Indication: RELAPSING-REMITTING MULTIPLE SCLEROSIS
     Route: 058
     Dates: start: 20160824, end: 20160831

REACTIONS (4)
  - Headache [Not Recovered/Not Resolved]
  - Inappropriate schedule of drug administration [Unknown]
  - Asphyxia [Recovered/Resolved]
  - Discomfort [Not Recovered/Not Resolved]

NARRATIVE: CASE EVENT DATE: 20160825
